FAERS Safety Report 6770491-X (Version None)
Quarter: 2010Q2

REPORT INFORMATION
  Report Type: 
  Country: None (occurrence: None)
  Receive Date: 20100615
  Receipt Date: 20100607
  Transmission Date: 20101027
  Serious: Yes (Death)
  Sender: FDA-Public Use
  Company Number: US-ROCHE-709006

PATIENT
  Age: 50 Year
  Sex: Female

DRUGS (11)
  1. BEVACIZUMAB [Suspect]
     Indication: FALLOPIAN TUBE CANCER
     Dosage: CYCLE 1
     Route: 042
     Dates: start: 20100128
  2. BEVACIZUMAB [Suspect]
     Dosage: CYCLE 2
     Route: 042
  3. BEVACIZUMAB [Suspect]
     Dosage: CYCLE 5, MISSED CYCLE 3 AND 4
     Route: 042
     Dates: start: 20100506
  4. PACLITAXEL [Suspect]
     Indication: FALLOPIAN TUBE CANCER
     Dosage: OVER 3 HOURS ON DAY 1
     Route: 042
     Dates: start: 20100128
  5. PACLITAXEL [Suspect]
     Route: 042
  6. PACLITAXEL [Suspect]
     Dosage: CYCLE 5 DAY 8, MISSED CYCLE 3 AND 4, ROUTE: IP
     Route: 042
     Dates: start: 20100513
  7. CISPLATIN [Suspect]
     Indication: FALLOPIAN TUBE CANCER
     Dosage: CYCLE 1, DAY 2
     Route: 033
     Dates: start: 20100128
  8. CISPLATIN [Suspect]
     Dosage: CYCLE 2, DAY 2
     Route: 033
     Dates: start: 20100219
  9. CARBOPLATIN [Suspect]
     Indication: FALLOPIAN TUBE CANCER
     Dosage: DOSE: 5 AUC OVER 30 MINUTES ON DAY 1, CYCLE 3
     Route: 042
  10. CARBOPLATIN [Suspect]
     Dosage: DOSE 5 AUC, CYCLE 4
     Route: 042
  11. CARBOPLATIN [Suspect]
     Dosage: DOSE: 5 AUC
     Route: 042
     Dates: start: 20100506

REACTIONS (17)
  - ABNORMAL BEHAVIOUR [None]
  - ANAEMIA [None]
  - BLOOD PRESSURE INADEQUATELY CONTROLLED [None]
  - CONFUSIONAL STATE [None]
  - DYSKINESIA [None]
  - HYPERSOMNIA [None]
  - HYPERTENSION [None]
  - MICROALBUMINURIA [None]
  - NEPHROPATHY TOXIC [None]
  - OBESITY [None]
  - PNEUMONIA [None]
  - RAPID EYE MOVEMENTS SLEEP ABNORMAL [None]
  - RENAL FAILURE ACUTE [None]
  - SLEEP APNOEA SYNDROME [None]
  - SUDDEN DEATH [None]
  - TREATMENT NONCOMPLIANCE [None]
  - TREMOR [None]
